FAERS Safety Report 24792976 (Version 1)
Quarter: 2024Q4

REPORT INFORMATION
  Report Type: Spontaneous
  Country: GB (occurrence: GB)
  Receive Date: 20241231
  Receipt Date: 20241231
  Transmission Date: 20250115
  Serious: Yes (Other)
  Sender: TEVA
  Company Number: GB-MHRA-34265654

PATIENT
  Age: 56 Year
  Sex: Male

DRUGS (1)
  1. CLONAZEPAM [Suspect]
     Active Substance: CLONAZEPAM
     Indication: Product used for unknown indication
     Route: 065

REACTIONS (7)
  - Depressed level of consciousness [Unknown]
  - Agitation [Unknown]
  - Abnormal behaviour [Unknown]
  - Stress [Unknown]
  - Myoclonus [Unknown]
  - Sleep disorder [Unknown]
  - Mood altered [Unknown]
